FAERS Safety Report 8556974-0 (Version None)
Quarter: 2012Q3

REPORT INFORMATION
  Report Type: 
  Country: None (occurrence: None)
  Receive Date: 20120801
  Receipt Date: 20120726
  Transmission Date: 20120928
  Serious: Yes (Other)
  Sender: FDA-Public Use
  Company Number: US-BAYER-2012-076135

PATIENT
  Age: 50 Year
  Sex: Female

DRUGS (2)
  1. MIRENA [Suspect]
     Indication: MENORRHAGIA
     Dosage: UNK
     Dates: start: 20120621, end: 20120713
  2. MIRENA [Suspect]
     Indication: CONTRACEPTION

REACTIONS (1)
  - DEVICE DISLOCATION [None]
